FAERS Safety Report 24953500 (Version 1)
Quarter: 2025Q1

REPORT INFORMATION
  Report Type: Spontaneous
  Country: SG (occurrence: SG)
  Receive Date: 20250211
  Receipt Date: 20250211
  Transmission Date: 20250408
  Serious: Yes (Hospitalization)
  Sender: ROCHE
  Company Number: SG-ROCHE-10000200573

PATIENT
  Age: 71 Year
  Sex: Female

DRUGS (1)
  1. RITUXIMAB [Suspect]
     Active Substance: RITUXIMAB
     Indication: Product used for unknown indication
     Route: 065

REACTIONS (1)
  - Bronchospasm [Unknown]

NARRATIVE: CASE EVENT DATE: 20241126
